FAERS Safety Report 11239740 (Version 2)
Quarter: 2015Q3

REPORT INFORMATION
  Report Type: Spontaneous
  Country: CH (occurrence: CH)
  Receive Date: 20150706
  Receipt Date: 20150813
  Transmission Date: 20151125
  Serious: Yes (Death, Other)
  Sender: FDA-Public Use
  Company Number: CH-PFIZER INC-2015098255

PATIENT
  Age: 54 Year
  Sex: Male
  Weight: 120 kg

DRUGS (13)
  1. TORASEMIDE [Concomitant]
     Active Substance: TORSEMIDE
     Indication: CARDIOMYOPATHY
  2. PRAVALOTIN [Concomitant]
     Active Substance: PRAVASTATIN SODIUM
     Indication: CARDIOMYOPATHY
  3. LISITRIL [Concomitant]
     Active Substance: LISINOPRIL
     Indication: HYPERTENSION
     Dosage: 5 MG, 1X/DAY
     Route: 048
  4. CARVEDILOL. [Concomitant]
     Active Substance: CARVEDILOL
     Indication: CARDIOMYOPATHY
  5. INSPRA [Concomitant]
     Active Substance: EPLERENONE
     Indication: CARDIOMYOPATHY
  6. ASPIRIN CARDIO [Concomitant]
     Active Substance: ASPIRIN
     Indication: CARDIOMYOPATHY
  7. PRAVALOTIN [Concomitant]
     Active Substance: PRAVASTATIN SODIUM
     Indication: HYPERTENSION
     Dosage: 20 MG, 1X/DAY
     Route: 048
  8. SUTENT [Suspect]
     Active Substance: SUNITINIB MALATE
     Indication: CHOLANGIOCARCINOMA
     Dosage: 37.5 MG, DAILY
     Route: 048
     Dates: start: 20150320, end: 20150402
  9. LISITRIL [Concomitant]
     Active Substance: LISINOPRIL
     Indication: CARDIOMYOPATHY
  10. CARVEDILOL. [Concomitant]
     Active Substance: CARVEDILOL
     Indication: HYPERTENSION
     Dosage: 6.25 MG, 1X/DAY
     Route: 048
  11. ASPIRIN CARDIO [Concomitant]
     Active Substance: ASPIRIN
     Indication: HYPERTENSION
     Dosage: 100 MG, 1X/DAY
     Route: 048
  12. INSPRA [Concomitant]
     Active Substance: EPLERENONE
     Indication: HYPERTENSION
     Dosage: 25 MG, 1X/DAY
     Route: 048
  13. TORASEMIDE [Concomitant]
     Active Substance: TORSEMIDE
     Indication: HYPERTENSION
     Dosage: 10 MG, 1X/DAY
     Route: 048

REACTIONS (7)
  - Renal impairment [Unknown]
  - Hepatic function abnormal [Unknown]
  - Product use issue [Unknown]
  - Ascites [Unknown]
  - Hepatic failure [Fatal]
  - Disease progression [Fatal]
  - Cholangiocarcinoma [Fatal]
